FAERS Safety Report 10479700 (Version 1)
Quarter: 2014Q3

REPORT INFORMATION
  Report Type: Spontaneous
  Country: FR (occurrence: FR)
  Receive Date: 20140927
  Receipt Date: 20140927
  Transmission Date: 20150326
  Serious: Yes (Hospitalization)
  Sender: FDA-Public Use
  Company Number: PHHY2014FR123478

PATIENT
  Age: 87 Year
  Sex: Female

DRUGS (8)
  1. BISOPROLOL [Concomitant]
     Active Substance: BISOPROLOL
     Dosage: 2.5 MG, DAILY
  2. ESIDREX [Suspect]
     Active Substance: HYDROCHLOROTHIAZIDE
     Dosage: 25 MG, QD
     Route: 048
  3. LEVOTHYROX [Concomitant]
     Active Substance: LEVOTHYROXINE
     Dosage: 100 UG, DAILY
     Route: 048
     Dates: start: 2012
  4. PREVISCAN [Suspect]
     Active Substance: FLUINDIONE
     Dosage: UNK UKN, UNK OVERDOSE
     Dates: start: 20140715
  5. CIPROFIBRATE [Concomitant]
     Active Substance: CIPROFIBRATE
     Dosage: 100 MG, DAILY
  6. PREVISCAN [Suspect]
     Active Substance: FLUINDIONE
     Dosage: 0.25 DF, DAILY
     Route: 048
  7. PREVISCAN [Suspect]
     Active Substance: FLUINDIONE
     Dosage: 0.25 DF, 2 DAYS OUT OF 3
     Route: 048
  8. RAMIPRIL. [Suspect]
     Active Substance: RAMIPRIL
     Dosage: 5 MG, DAILY
     Route: 048

REACTIONS (4)
  - Renal failure [Recovered/Resolved]
  - Haemorrhage [Recovering/Resolving]
  - Accidental overdose [Recovered/Resolved]
  - International normalised ratio increased [Recovered/Resolved]

NARRATIVE: CASE EVENT DATE: 20140715
